FAERS Safety Report 8252497-7 (Version None)
Quarter: 2012Q2

REPORT INFORMATION
  Report Type: 
  Country: None (occurrence: None)
  Receive Date: 20120402
  Receipt Date: 20111122
  Transmission Date: 20120825
  Serious: No
  Sender: FDA-Public Use
  Company Number: US-ABBOTT-11P-163-0866013-00

PATIENT
  Sex: Male

DRUGS (7)
  1. UROXATRAL [Concomitant]
     Indication: PROSTATOMEGALY
  2. SYNTHROID [Concomitant]
     Indication: HYPOTHYROIDISM
  3. CORVEDILOL [Concomitant]
     Indication: HYPERTENSION
  4. LIPITOR [Concomitant]
     Indication: BLOOD CHOLESTEROL INCREASED
  5. ANDROGEL [Suspect]
     Indication: BLOOD TESTOSTERONE DECREASED
     Dosage: 1-5 GM PACKET PER DAY(50MG TESTOSTERONE)
     Route: 062
     Dates: start: 20110901
  6. NIASPAN [Concomitant]
     Indication: HYPERLIPIDAEMIA
     Dosage: 1000 MG DAILY
  7. EXFORGE [Concomitant]
     Indication: HYPERTENSION

REACTIONS (4)
  - BREAST ENLARGEMENT [None]
  - BREAST PAIN [None]
  - NIPPLE PAIN [None]
  - BREAST TENDERNESS [None]
